FAERS Safety Report 13884901 (Version 1)
Quarter: 2017Q3

REPORT INFORMATION
  Report Type: Spontaneous
  Country: US (occurrence: US)
  Receive Date: 20170821
  Receipt Date: 20170821
  Transmission Date: 20171127
  Serious: No
  Sender: FDA-Public Use
  Company Number: US-TEVA-707389USA

PATIENT
  Sex: Female

DRUGS (1)
  1. FAMCICLOVIR. [Suspect]
     Active Substance: FAMCICLOVIR

REACTIONS (2)
  - Product substitution issue [Unknown]
  - Drug ineffective [Unknown]
